FAERS Safety Report 7879978-X (Version None)
Quarter: 2011Q4

REPORT INFORMATION
  Report Type: 
  Country: None (occurrence: None)
  Receive Date: 20111101
  Receipt Date: 20110919
  Transmission Date: 20120403
  Serious: Yes (Other)
  Sender: FDA-Public Use
  Company Number: AR-ROCHE-GNE324801

PATIENT
  Sex: Female

DRUGS (3)
  1. ALPRAZOLAM [Concomitant]
  2. LUCENTIS [Suspect]
     Indication: PRODUCT USED FOR UNKNOWN INDICATION
     Dosage: DOSE: 3 AMPULES
     Route: 050
  3. LOSARTAN POTASSIUM [Concomitant]

REACTIONS (1)
  - LIMB INJURY [None]
